FAERS Safety Report 11574458 (Version 1)
Quarter: 2015Q3

REPORT INFORMATION
  Report Type: Spontaneous
  Country: GB (occurrence: US)
  Receive Date: 20150930
  Receipt Date: 20150930
  Transmission Date: 20151125
  Serious: Yes (Death)
  Sender: FDA-Public Use
  Company Number: US-FRESENIUS KABI-FK201504622

PATIENT
  Age: 15 Year
  Sex: Female
  Weight: 41 kg

DRUGS (1)
  1. LIDOCAINE 2 % (MANUFACTURER UNKNOWN) (LIDOCAINE) (LIDOCAINE) [Suspect]
     Active Substance: LIDOCAINE
     Indication: STOMATITIS
     Route: 048

REACTIONS (11)
  - Intentional overdose [Fatal]
  - Hypoxia [None]
  - Toxicity to various agents [Fatal]
  - Brain death [Fatal]
  - Cardiac arrest [Fatal]
  - Tachycardia [None]
  - Hypertension [None]
  - Seizure [Fatal]
  - Electrocardiogram QRS complex prolonged [None]
  - Brain herniation [None]
  - Apnoea [None]
